FAERS Safety Report 6976450-6 (Version None)
Quarter: 2010Q3

REPORT INFORMATION
  Report Type: 
  Country: None (occurrence: None)
  Receive Date: 20100910
  Receipt Date: 20100902
  Transmission Date: 20110219
  Serious: Yes (Hospitalization, Other)
  Sender: FDA-Public Use
  Company Number: BE-AMGEN-QUU427447

PATIENT
  Sex: Male

DRUGS (8)
  1. ARANESP [Suspect]
     Indication: DIALYSIS
     Dates: start: 20100305, end: 20100726
  2. EPREX [Concomitant]
     Dates: start: 20070101
  3. ALFA D [Concomitant]
  4. CETIRIZINE HCL [Concomitant]
  5. UNSPECIFIED MEDICATION [Concomitant]
  6. RENAGEL [Concomitant]
  7. ZANTAC [Concomitant]
  8. LORAZEPAM [Concomitant]

REACTIONS (13)
  - ANAEMIA [None]
  - DERMATITIS CONTACT [None]
  - DERMATITIS EXFOLIATIVE [None]
  - DRUG RESISTANCE [None]
  - FALL [None]
  - HYPERCALCAEMIA [None]
  - HYPEREOSINOPHILIC SYNDROME [None]
  - LUNG INFILTRATION [None]
  - REFLUX OESOPHAGITIS [None]
  - REMOVAL OF RENAL TRANSPLANT [None]
  - RIB FRACTURE [None]
  - STAPHYLOCOCCAL SEPSIS [None]
  - SYNOVITIS [None]
